FAERS Safety Report 8618617-7 (Version None)
Quarter: 2012Q3

REPORT INFORMATION
  Report Type: 
  Country: None (occurrence: None)
  Receive Date: 20120824
  Receipt Date: 20120821
  Transmission Date: 20120928
  Serious: No
  Sender: FDA-Public Use
  Company Number: US-PFIZER INC-2012167089

PATIENT

DRUGS (1)
  1. GEODON [Suspect]
     Indication: SCHIZOPHRENIA
     Dosage: 120 MG, 3X/DAY
     Route: 048

REACTIONS (1)
  - OVERDOSE [None]
